FAERS Safety Report 10018756 (Version 5)
Quarter: 2016Q3

REPORT INFORMATION
  Report Type: Report from Study
  Country: NZ (occurrence: NZ)
  Receive Date: 20140318
  Receipt Date: 20160722
  Transmission Date: 20161108
  Serious: Yes (Other)
  Sender: FDA-Public Use
  Company Number: NZ-ABBVIE-14P-118-1198928-00

PATIENT
  Age: 57 Year
  Sex: Male

DRUGS (4)
  1. TRAMADOL. [Concomitant]
     Active Substance: TRAMADOL
     Indication: PRODUCT USED FOR UNKNOWN INDICATION
  2. MORPHINE [Suspect]
     Active Substance: MORPHINE
     Indication: PRODUCT USED FOR UNKNOWN INDICATION
     Route: 065
  3. HUMIRA [Suspect]
     Active Substance: ADALIMUMAB
     Route: 058
     Dates: start: 2010
  4. HUMIRA [Suspect]
     Active Substance: ADALIMUMAB
     Indication: ANKYLOSING SPONDYLITIS
     Route: 058
     Dates: end: 2010

REACTIONS (21)
  - Paraesthesia [Unknown]
  - Impaired work ability [Unknown]
  - Pain [Unknown]
  - Incision site pain [Unknown]
  - Neck pain [Unknown]
  - Headache [Unknown]
  - Fall [Unknown]
  - Spinal pain [Not Recovered/Not Resolved]
  - Spinal cord injury cervical [Unknown]
  - Back pain [Unknown]
  - Fall [Unknown]
  - Drug dose omission [Unknown]
  - Cyst [Unknown]
  - Nerve compression [Unknown]
  - Depression [Unknown]
  - Spinal pain [Unknown]
  - Mood swings [Unknown]
  - Spinal column injury [Unknown]
  - Nerve injury [Unknown]
  - Accident [Unknown]
  - Spinal cord injury lumbar [Unknown]

NARRATIVE: CASE EVENT DATE: 2010
